FAERS Safety Report 8795236 (Version 2)
Quarter: 2012Q4

REPORT INFORMATION
  Report Type: 
  Country: CA (occurrence: CA)
  Receive Date: 20120917
  Receipt Date: 20120921
  Transmission Date: 20130627
  Serious: Yes (Other)
  Sender: FDA-Public Use
  Company Number: PHHY2012CA080186

PATIENT
  Sex: Female

DRUGS (4)
  1. ACLASTA [Suspect]
     Indication: OSTEOPOROSIS
     Route: 042
     Dates: start: 20080903
  2. ACLASTA [Suspect]
     Route: 042
     Dates: start: 20090924
  3. ACLASTA [Suspect]
     Route: 042
     Dates: start: 20100927
  4. ACLASTA [Suspect]
     Route: 042
     Dates: start: 20110927

REACTIONS (1)
  - Fall [Unknown]
